FAERS Safety Report 9254979 (Version 9)
Quarter: 2013Q4

REPORT INFORMATION
  Report Type: Spontaneous
  Country: US (occurrence: US)
  Receive Date: 20130425
  Receipt Date: 20131227
  Transmission Date: 20140711
  Serious: Yes (Hospitalization, Other)
  Sender: FDA-Public Use
  Company Number: US-009507513-1304USA008230

PATIENT
  Age: 49 Year
  Sex: Female
  Weight: 59.41 kg

DRUGS (11)
  1. VICTRELIS [Suspect]
     Indication: CHRONIC HEPATITIS C
     Dosage: UNK
     Route: 048
  2. PEGASYS [Suspect]
     Indication: CHRONIC HEPATITIS C
     Dosage: 180 MICROGRAM, QW
     Route: 058
     Dates: start: 20110518, end: 20111117
  3. PEGASYS [Suspect]
     Dosage: 180 MICROGRAM, QW
     Route: 058
     Dates: start: 20130103, end: 20130127
  4. COPEGUS [Suspect]
     Indication: HEPATITIS C
     Dosage: 1000 MG, DIVIDED DOSES
     Route: 065
     Dates: start: 20110518, end: 20111117
  5. COPEGUS [Suspect]
     Dosage: DIVIDED DOSES 1 DF, QD
     Route: 065
     Dates: start: 20130103, end: 2013
  6. RIBAPAK [Suspect]
     Indication: CHRONIC HEPATITIS C
     Dosage: 400 MG DAILY, DIVIDED DOSES
     Route: 048
     Dates: start: 20130103, end: 20130127
  7. RIBAPAK [Suspect]
     Dosage: 1000 MG, PER DAY IN DIVIDED DOSES
     Route: 048
  8. ONDANSETRON [Concomitant]
     Dosage: 8 MG, UNK
  9. WELLBUTRIN [Concomitant]
     Indication: DEPRESSION
     Dosage: 300 MG, QD
  10. WELLBUTRIN [Concomitant]
     Indication: EX-TOBACCO USER
  11. LAMICTAL [Concomitant]
     Dosage: 200 MG, BID

REACTIONS (25)
  - Pneumonia [Unknown]
  - White blood cell count decreased [Not Recovered/Not Resolved]
  - Depression [Unknown]
  - Anaemia [Not Recovered/Not Resolved]
  - Joint swelling [Unknown]
  - Medication error [Unknown]
  - Mood swings [Unknown]
  - Haematemesis [Unknown]
  - Eructation [Unknown]
  - Memory impairment [Unknown]
  - Disturbance in attention [Unknown]
  - Hallucination [Unknown]
  - Stress [Unknown]
  - Appetite disorder [Unknown]
  - Weight decreased [Unknown]
  - Vomiting [Unknown]
  - Anaemia [Not Recovered/Not Resolved]
  - Asthenia [Unknown]
  - Decreased appetite [Unknown]
  - Alopecia [Unknown]
  - Nausea [Unknown]
  - Dysgeusia [Unknown]
  - Swelling [Unknown]
  - Vomiting [Recovering/Resolving]
  - Nausea [Unknown]
